FAERS Safety Report 19609790 (Version 1)
Quarter: 2021Q3

REPORT INFORMATION
  Report Type: Spontaneous
  Country: PE (occurrence: PE)
  Receive Date: 20210726
  Receipt Date: 20210726
  Transmission Date: 20211014
  Serious: Yes (Death, Life-Threatening, Hospitalization)
  Sender: FDA-Public Use
  Company Number: PE-MYLANLABS-2021M1045209

PATIENT
  Age: 39 Year
  Sex: Female

DRUGS (2)
  1. CLOZAPINE. [Suspect]
     Active Substance: CLOZAPINE
     Indication: SCHIZOPHRENIA
     Dosage: 200 MILLIGRAM, QD
     Route: 065
  2. CLOZAPINE. [Suspect]
     Active Substance: CLOZAPINE
     Dosage: 150 MILLIGRAM, QD
     Route: 065

REACTIONS (7)
  - Portal hypertensive gastropathy [Unknown]
  - Encephalopathy [Fatal]
  - Hepatotoxicity [Unknown]
  - Multiple organ dysfunction syndrome [Fatal]
  - Hypovolaemic shock [Fatal]
  - Upper gastrointestinal haemorrhage [Unknown]
  - Vomiting [Unknown]
